FAERS Safety Report 6496256-4 (Version None)
Quarter: 2009Q4

REPORT INFORMATION
  Report Type: 
  Country: None (occurrence: None)
  Receive Date: 20091214
  Receipt Date: 20090306
  Transmission Date: 20100525
  Serious: Yes (Other)
  Sender: FDA-Public Use
  Company Number: US-BRISTOL-MYERS SQUIBB COMPANY-14534705

PATIENT
  Sex: Male

DRUGS (1)
  1. ABILIFY [Suspect]
     Indication: MENTAL DISORDER
     Dosage: STARTED 2-3 YRS AGO

REACTIONS (3)
  - GRAND MAL CONVULSION [None]
  - PARKINSONISM [None]
  - TARDIVE DYSKINESIA [None]
